FAERS Safety Report 25803534 (Version 1)
Quarter: 2025Q3

REPORT INFORMATION
  Report Type: Spontaneous
  Country: US (occurrence: None)
  Receive Date: 20250915
  Receipt Date: 20250915
  Transmission Date: 20251021
  Serious: Yes (Hospitalization)
  Sender: FDA-CTU
  Company Number: None

PATIENT
  Age: 47 Year
  Sex: Female

DRUGS (1)
  1. RINVOQ [Suspect]
     Active Substance: UPADACITINIB
     Indication: Rheumatoid arthritis
     Dosage: OTHER STRENGTH : 15MG TABLET, 15 MG;?FREQUENCY : DAILY;?
     Route: 048

REACTIONS (1)
  - Spinal operation [None]

NARRATIVE: CASE EVENT DATE: 20250912
